FAERS Safety Report 8776709 (Version 2)
Quarter: 2012Q4

REPORT INFORMATION
  Report Type: 
  Country: PL (occurrence: PL)
  Receive Date: 20120906
  Receipt Date: 20121115
  Transmission Date: 20130627
  Serious: Yes (Life-Threatening, Hospitalization)
  Sender: FDA-Public Use
  Company Number: PL-ELI_LILLY_AND_COMPANY-PL201208009503

PATIENT
  Sex: Male
  Weight: 60 kg

DRUGS (5)
  1. ZYPADHERA [Suspect]
     Dosage: UNK UNK, unknown
  2. ZYPADHERA [Suspect]
     Dosage: 300 mg, unknown
     Route: 030
     Dates: start: 20120816
  3. ZYPREXA [Suspect]
     Dosage: UNK, unknown
  4. ABILIFY [Concomitant]
     Dosage: 15 mg, unknown
     Route: 048
  5. PERITOL [Concomitant]
     Dosage: UNK, unknown

REACTIONS (8)
  - Convulsion [Recovered/Resolved]
  - Loss of consciousness [Recovered/Resolved]
  - Hypertension [Recovered/Resolved]
  - Pyrexia [Recovered/Resolved]
  - Foaming at mouth [Recovered/Resolved]
  - Scleral hyperaemia [Recovered/Resolved]
  - Stress [Recovered/Resolved]
  - Somnolence [Recovered/Resolved]
